FAERS Safety Report 14080579 (Version 1)
Quarter: 2017Q4

REPORT INFORMATION
  Report Type: Report from Study
  Country: US (occurrence: US)
  Receive Date: 20171012
  Receipt Date: 20171012
  Transmission Date: 20180321
  Serious: Yes (Hospitalization, Other)
  Sender: FDA-Public Use
  Company Number: US-BAYER-2017-000476

PATIENT
  Age: 34 Year
  Sex: Female
  Weight: 73.47 kg

DRUGS (7)
  1. ADEMPAS [Suspect]
     Active Substance: RIOCIGUAT
     Indication: SICKLE CELL ANAEMIA
     Dosage: 1.0 MG, TID
     Route: 048
  2. OPSUMIT [Concomitant]
     Active Substance: MACITENTAN
     Dosage: UNK
  3. ADEMPAS [Suspect]
     Active Substance: RIOCIGUAT
     Indication: SICKLE CELL ANAEMIA
     Dosage: 2.5 MG, TID
     Dates: start: 20170327
  4. ADEMPAS [Suspect]
     Active Substance: RIOCIGUAT
     Indication: SICKLE CELL ANAEMIA
     Dosage: UNK
  5. ADEMPAS [Suspect]
     Active Substance: RIOCIGUAT
     Indication: SICKLE CELL ANAEMIA
     Dosage: 0.5 MG, TID
     Route: 048
  6. ADEMPAS [Suspect]
     Active Substance: RIOCIGUAT
     Indication: SICKLE CELL ANAEMIA
     Dosage: 2.5 MG, TID
     Dates: start: 20170327
  7. ADEMPAS [Suspect]
     Active Substance: RIOCIGUAT
     Indication: SICKLE CELL ANAEMIA
     Dosage: UNK
     Dates: start: 20161214

REACTIONS (18)
  - Sickle cell anaemia with crisis [Not Recovered/Not Resolved]
  - Oxygen saturation decreased [Unknown]
  - Clostridium difficile infection [Unknown]
  - Inappropriate schedule of drug administration [None]
  - Sickle cell anaemia [Unknown]
  - Influenza [Unknown]
  - Bronchitis [Unknown]
  - Gastric infection [Unknown]
  - Product use in unapproved indication [None]
  - Sepsis [Unknown]
  - Sickle cell anaemia with crisis [Unknown]
  - Hypotension [Unknown]
  - Pain [Unknown]
  - Dyspnoea [Unknown]
  - Off label use [None]
  - Peripheral swelling [Unknown]
  - Pneumonia [Unknown]
  - Oedema [Unknown]
